FAERS Safety Report 25362462 (Version 1)
Quarter: 2025Q2

REPORT INFORMATION
  Report Type: Spontaneous
  Country: US (occurrence: None)
  Receive Date: 20250524
  Receipt Date: 20250524
  Transmission Date: 20250717
  Serious: Yes (unspecified)
  Sender: FDA-CTU
  Company Number: None

PATIENT
  Age: 62 Year
  Sex: Female
  Weight: 94.05 kg

DRUGS (7)
  1. ZEPBOUND [Suspect]
     Active Substance: TIRZEPATIDE
     Indication: Inflammation
  2. ZEPBOUND [Suspect]
     Active Substance: TIRZEPATIDE
     Indication: Weight decreased
  3. Mycophenolate Mofetil 1500 mg twice a day [Concomitant]
     Dosage: FREQUENCY : TWICE A DAY;?
  4. Nexletol 180 mg once a day [Concomitant]
     Dosage: FREQUENCY : DAILY;?
  5. Ibuterol inhaler as needed [Concomitant]
  6. Vitamin D daily [Concomitant]
  7. SEED probiotic [Concomitant]

REACTIONS (1)
  - Deafness unilateral [None]

NARRATIVE: CASE EVENT DATE: 20250405
